FAERS Safety Report 23202582 (Version 1)
Quarter: 2023Q4

REPORT INFORMATION
  Report Type: Spontaneous
  Country: MX (occurrence: MX)
  Receive Date: 20231120
  Receipt Date: 20231120
  Transmission Date: 20240110
  Serious: Yes (Other)
  Sender: FDA-Public Use
  Company Number: MX-PHARMAMAR-2023PM000730

PATIENT
  Age: 71 Year
  Sex: Male

DRUGS (1)
  1. ZEPZELCA [Suspect]
     Active Substance: LURBINECTEDIN
     Indication: Small cell lung cancer
     Dosage: 3.2 MILLIGRAM/SQ. METER
     Route: 042
     Dates: start: 20230925

REACTIONS (5)
  - Seizure [Unknown]
  - Chromaturia [Unknown]
  - Nausea [Unknown]
  - Vomiting [Unknown]
  - Fatigue [Unknown]
